FAERS Safety Report 6877443-X (Version None)
Quarter: 2010Q3

REPORT INFORMATION
  Report Type: 
  Country: None (occurrence: None)
  Receive Date: 20100727
  Receipt Date: 20100213
  Transmission Date: 20110219
  Serious: No
  Sender: FDA-Public Use
  Company Number: US-ABBOTT-10P-163-0621988-00

PATIENT
  Sex: Male

DRUGS (4)
  1. SYNTHROID [Suspect]
     Indication: HYPOTHYROIDISM
     Route: 048
     Dates: start: 20091101, end: 20100101
  2. SYNTHROID [Suspect]
     Route: 048
     Dates: start: 20091101, end: 20100101
  3. SYNTHROID [Suspect]
     Route: 048
     Dates: start: 20100101
  4. SIMVASTATIN [Concomitant]
     Indication: PRODUCT USED FOR UNKNOWN INDICATION

REACTIONS (5)
  - ANXIETY [None]
  - DEPRESSION [None]
  - PALPITATIONS [None]
  - THYROID NEOPLASM [None]
  - TREMOR [None]
